FAERS Safety Report 4353573-1 (Version None)
Quarter: 2004Q2

REPORT INFORMATION
  Report Type: 
  Country: None (occurrence: None)
  Receive Date: 20040505
  Receipt Date: 20040422
  Transmission Date: 20050107
  Serious: Yes (Other)
  Sender: FDA-Public Use
  Company Number: AU-GLAXOSMITHKLINE-B0330693A

PATIENT
  Sex: Female

DRUGS (3)
  1. BUPROPION HYDROCHLORIDE [Suspect]
  2. CHOLESTEROL REDUCING AGENT NAME NOT KNOWN [Concomitant]
  3. CARDIAC MEDICATION [Concomitant]

REACTIONS (5)
  - DIZZINESS [None]
  - DRUG INTERACTION [None]
  - HALLUCINATION [None]
  - NASOPHARYNGITIS [None]
  - TREMOR [None]
